FAERS Safety Report 4296965-1 (Version None)
Quarter: 2004Q1

REPORT INFORMATION
  Report Type: 
  Country: None (occurrence: None)
  Receive Date: 20040213
  Receipt Date: 20040204
  Transmission Date: 20041129
  Serious: Yes (Hospitalization)
  Sender: FDA-Public Use
  Company Number: PK-SHR-04-020917

PATIENT
  Age: 50 Year
  Sex: Female

DRUGS (2)
  1. FLUDARA [Suspect]
     Indication: CHRONIC LYMPHOCYTIC LEUKAEMIA
     Dosage: 25 MG/M2, CYCLE X 5D, ORAL
     Route: 048
  2. CHLORAMBUCIL [Concomitant]

REACTIONS (2)
  - AUTOIMMUNE THROMBOCYTOPENIA [None]
  - HAEMOGLOBIN DECREASED [None]
